FAERS Safety Report 21518014 (Version 1)
Quarter: 2022Q4

REPORT INFORMATION
  Report Type: Spontaneous
  Country: US (occurrence: US)
  Receive Date: 20221028
  Receipt Date: 20221028
  Transmission Date: 20230112
  Serious: No
  Sender: FDA-Public Use
  Company Number: US-BoehringerIngelheim-2022-BI-199905

PATIENT
  Sex: Male

DRUGS (3)
  1. PRADAXA [Suspect]
     Active Substance: DABIGATRAN ETEXILATE MESYLATE
     Indication: Product used for unknown indication
  2. tumeric/curcumin supplement [Concomitant]
     Indication: Arthritis
  3. ALA supplement [Concomitant]
     Indication: Neuropathy peripheral

REACTIONS (1)
  - Arthritis [Not Recovered/Not Resolved]
